FAERS Safety Report 24664592 (Version 4)
Quarter: 2025Q1

REPORT INFORMATION
  Report Type: Report from Study
  Country: CO (occurrence: CO)
  Receive Date: 20241126
  Receipt Date: 20250321
  Transmission Date: 20250408
  Serious: Yes (Hospitalization)
  Sender: EISAI
  Company Number: CO-Eisai-EC-2024-179491

PATIENT
  Age: 68 Year
  Sex: Female
  Weight: 50.00 kg

DRUGS (4)
  1. LENVIMA [Suspect]
     Active Substance: LENVATINIB
     Indication: Hepatic cancer
     Dates: start: 20240923, end: 20241126
  2. LENVIMA [Suspect]
     Active Substance: LENVATINIB
     Dates: start: 20241211, end: 20250111
  3. LENVIMA [Suspect]
     Active Substance: LENVATINIB
     Dates: start: 20250303, end: 20250304
  4. LENVIMA [Suspect]
     Active Substance: LENVATINIB
     Dates: start: 20250305

REACTIONS (2)
  - Blood pressure increased [Not Recovered/Not Resolved]
  - Tremor [Recovered/Resolved]

NARRATIVE: CASE EVENT DATE: 20241106
